FAERS Safety Report 7546376-8 (Version None)
Quarter: 2011Q2

REPORT INFORMATION
  Report Type: 
  Country: None (occurrence: None)
  Receive Date: 20110614
  Receipt Date: 20110609
  Transmission Date: 20111010
  Serious: Yes (Hospitalization, Other)
  Sender: FDA-Public Use
  Company Number: US-PFIZER INC-2011126276

PATIENT

DRUGS (3)
  1. LYRICA [Suspect]
     Dosage: UNK
     Dates: start: 20110513
  2. GABAPENTIN [Suspect]
     Dosage: UNK
     Dates: end: 20110513
  3. CODEINE [Suspect]
     Dosage: UNK

REACTIONS (4)
  - SUICIDE ATTEMPT [None]
  - SUICIDAL IDEATION [None]
  - LOSS OF CONSCIOUSNESS [None]
  - INTENTIONAL OVERDOSE [None]
